FAERS Safety Report 24639554 (Version 1)
Quarter: 2024Q4

REPORT INFORMATION
  Report Type: Spontaneous
  Country: US (occurrence: US)
  Receive Date: 20241119
  Receipt Date: 20241119
  Transmission Date: 20250114
  Serious: No
  Sender: ALVOGEN
  Company Number: US-ALVOGEN-2024092890

PATIENT
  Sex: Female

DRUGS (1)
  1. TERIPARATIDE [Suspect]
     Active Substance: TERIPARATIDE
     Indication: Osteoporosis
     Dosage: 10 MONTHS BEFORE OCTOBER

REACTIONS (3)
  - Visual impairment [Unknown]
  - Poor quality sleep [Unknown]
  - Product storage error [Unknown]

NARRATIVE: CASE EVENT DATE: 20231001
